FAERS Safety Report 17346646 (Version 1)
Quarter: 2020Q1

REPORT INFORMATION
  Report Type: Report from Study
  Country: US (occurrence: US)
  Receive Date: 20200129
  Receipt Date: 20200129
  Transmission Date: 20200409
  Serious: No
  Sender: FDA-Public Use
  Company Number: US-EXELIXIS-CABO-19023312

PATIENT
  Sex: Male

DRUGS (1)
  1. CABOMETYX [Suspect]
     Active Substance: CABOZANTINIB S-MALATE
     Indication: HEPATOCELLULAR CARCINOMA
     Dosage: 60 MG, QD (A/M W/O FOOD)
     Route: 048
     Dates: start: 20190730, end: 20191001

REACTIONS (8)
  - Diarrhoea [Recovering/Resolving]
  - Taste disorder [Not Recovered/Not Resolved]
  - Decreased appetite [Not Recovered/Not Resolved]
  - Oral pain [Not Recovered/Not Resolved]
  - Skin ulcer [Unknown]
  - Glossodynia [Recovering/Resolving]
  - Pruritus [Not Recovered/Not Resolved]
  - Nausea [Recovered/Resolved]
